FAERS Safety Report 5519641-3 (Version None)
Quarter: 2007Q4

REPORT INFORMATION
  Report Type: 
  Country: None (occurrence: None)
  Receive Date: 20071116
  Receipt Date: 20071112
  Transmission Date: 20080405
  Serious: Yes (Hospitalization)
  Sender: FDA-Public Use
  Company Number: DE-WYE-G00563107

PATIENT
  Sex: Male
  Weight: 70 kg

DRUGS (4)
  1. VENLAFAXINE HCL [Suspect]
     Indication: DEPRESSION
     Route: 048
  2. TRILEPTAL [Concomitant]
     Route: 048
  3. PLAVIX [Concomitant]
     Route: 048
  4. BACLOFEN [Suspect]
     Indication: MUSCLE SPASTICITY
     Route: 048

REACTIONS (1)
  - GRAND MAL CONVULSION [None]
